FAERS Safety Report 19631492 (Version 1)
Quarter: 2021Q3

REPORT INFORMATION
  Report Type: Spontaneous
  Country: US (occurrence: US)
  Receive Date: 20210728
  Receipt Date: 20210728
  Transmission Date: 20211014
  Serious: No
  Sender: FDA-Public Use
  Company Number: US-ROCHE-2634383

PATIENT
  Age: 59 Year
  Sex: Female

DRUGS (1)
  1. XELODA [Suspect]
     Active Substance: CAPECITABINE
     Indication: PRODUCT USED FOR UNKNOWN INDICATION
     Route: 048
     Dates: start: 20200301

REACTIONS (8)
  - Skin exfoliation [Unknown]
  - Breast inflammation [Unknown]
  - Inflammation [Unknown]
  - Arthralgia [Unknown]
  - Pain in extremity [Unknown]
  - Ageusia [Unknown]
  - Flatulence [Unknown]
  - Breast pain [Unknown]

NARRATIVE: CASE EVENT DATE: 20200330
